FAERS Safety Report 20201829 (Version 1)
Quarter: 2021Q4

REPORT INFORMATION
  Report Type: Spontaneous
  Country: US (occurrence: US)
  Receive Date: 20211217
  Receipt Date: 20211217
  Transmission Date: 20220303
  Serious: Yes (Other)
  Sender: FDA-Public Use
  Company Number: US-ASTELLAS-2021US044045

PATIENT
  Age: 73 Year
  Sex: Male

DRUGS (20)
  1. LEXISCAN [Suspect]
     Active Substance: REGADENOSON
     Indication: Coronary artery disease
     Dosage: 0.4 MG, OTHER (ONCE)
     Route: 042
     Dates: start: 20211112
  2. LEXISCAN [Suspect]
     Active Substance: REGADENOSON
     Indication: Coronary artery disease
     Dosage: 0.4 MG, OTHER (ONCE)
     Route: 042
     Dates: start: 20211112
  3. LEXISCAN [Suspect]
     Active Substance: REGADENOSON
     Indication: Coronary artery disease
     Dosage: 0.4 MG, OTHER (ONCE)
     Route: 042
     Dates: start: 20211112
  4. LEXISCAN [Suspect]
     Active Substance: REGADENOSON
     Indication: Coronary artery disease
     Dosage: 0.4 MG, OTHER (ONCE)
     Route: 042
     Dates: start: 20211112
  5. LEXISCAN [Suspect]
     Active Substance: REGADENOSON
     Indication: Cardiac stress test
  6. LEXISCAN [Suspect]
     Active Substance: REGADENOSON
     Indication: Cardiac stress test
  7. LEXISCAN [Suspect]
     Active Substance: REGADENOSON
     Indication: Cardiac stress test
  8. LEXISCAN [Suspect]
     Active Substance: REGADENOSON
     Indication: Cardiac stress test
  9. METOPROLOL TARTRATE [Concomitant]
     Active Substance: METOPROLOL TARTRATE
     Indication: Product used for unknown indication
     Route: 065
  10. NEOMYCIN [Concomitant]
     Active Substance: NEOMYCIN
     Indication: Product used for unknown indication
     Dosage: UNK UNK, UNKNOWN FREQ.
     Route: 065
  11. ASPIRIN [Concomitant]
     Active Substance: ASPIRIN
     Indication: Product used for unknown indication
     Route: 065
  12. FUROSEMIDE [Concomitant]
     Active Substance: FUROSEMIDE
     Indication: Product used for unknown indication
     Route: 065
  13. Isosorbid [Concomitant]
     Indication: Product used for unknown indication
     Route: 065
  14. ATORVASTATIN [Concomitant]
     Active Substance: ATORVASTATIN
     Indication: Product used for unknown indication
     Route: 065
  15. ALBUTEROL [Concomitant]
     Active Substance: ALBUTEROL
     Indication: Product used for unknown indication
     Dosage: UNK UNK, UNKNOWN FREQ.
     Route: 065
  16. NOVOLOG [Concomitant]
     Active Substance: INSULIN ASPART
     Indication: Product used for unknown indication
     Dosage: UNK UNK, UNKNOWN FREQ.
     Route: 065
  17. LEVEMIR [Concomitant]
     Active Substance: INSULIN DETEMIR
     Indication: Product used for unknown indication
     Dosage: UNK UNK, UNKNOWN FREQ.
     Route: 065
  18. CELEXA [Concomitant]
     Active Substance: CITALOPRAM HYDROBROMIDE
     Indication: Product used for unknown indication
     Route: 065
  19. TRULICITY [Concomitant]
     Active Substance: DULAGLUTIDE
     Indication: Product used for unknown indication
     Route: 065
  20. LORATADINE [Concomitant]
     Active Substance: LORATADINE
     Indication: Product used for unknown indication
     Route: 065

REACTIONS (9)
  - Pallor [Recovered/Resolved]
  - Hyperhidrosis [Recovered/Resolved]
  - Syncope [Recovered/Resolved]
  - Vomiting [Recovered/Resolved]
  - Nausea [Recovered/Resolved]
  - Dyspnoea [Recovered/Resolved]
  - Dizziness [Recovered/Resolved]
  - Blood pressure decreased [Recovered/Resolved]
  - Accident [Recovered/Resolved]

NARRATIVE: CASE EVENT DATE: 20211112
